FAERS Safety Report 9894076 (Version 1)
Quarter: 2014Q1

REPORT INFORMATION
  Report Type: Spontaneous
  Country: US (occurrence: US)
  Receive Date: 20140213
  Receipt Date: 20140213
  Transmission Date: 20141002
  Serious: Yes (Other)
  Sender: FDA-Public Use
  Company Number: CHPA2014US002524

PATIENT
  Age: 29 Year
  Sex: Male

DRUGS (1)
  1. GAS-X CHEWABLE TABLETS UNKNOWN [Suspect]
     Dosage: UNK
     Route: 048

REACTIONS (1)
  - Coeliac disease [Unknown]
